FAERS Safety Report 21000244 (Version 1)
Quarter: 2022Q2

REPORT INFORMATION
  Report Type: Spontaneous
  Country: NL (occurrence: NL)
  Receive Date: 20220623
  Receipt Date: 20220623
  Transmission Date: 20220721
  Serious: Yes (Hospitalization, Other)
  Sender: FDA-Public Use
  Company Number: None

PATIENT
  Age: 62 Year
  Sex: Female
  Weight: 74 kg

DRUGS (2)
  1. HYDROCHLOROTHIAZIDE [Suspect]
     Active Substance: HYDROCHLOROTHIAZIDE
     Indication: Hypertension
     Dosage: 25 MILLIGRAM DAILY; 1DD1,HYDROCHLOROTHIAZIDE TABLET 25MG / BRAND NAME NOT SPECIFIED,DURATION 4 YEARS
     Dates: start: 2018, end: 20220224
  2. AMLODIPINE [Concomitant]
     Active Substance: AMLODIPINE BESYLATE
     Indication: Product used for unknown indication
     Dosage: TABLET, 10 MG,AMLODIPINE TABLET 10MG / BRAND NAME NOT SPECIFIED,THERAPY START DATE AND END DATE : AS

REACTIONS (3)
  - Hypokalaemia [Recovered/Resolved]
  - Circulatory collapse [Recovered/Resolved]
  - Electrocardiogram abnormal [Recovered/Resolved]

NARRATIVE: CASE EVENT DATE: 20220224
